FAERS Safety Report 8379105-9 (Version None)
Quarter: 2012Q2

REPORT INFORMATION
  Report Type: 
  Country: None (occurrence: None)
  Receive Date: 20120523
  Receipt Date: 20120515
  Transmission Date: 20120825
  Serious: Yes (Other)
  Sender: FDA-Public Use
  Company Number: GB-BAYER-2012-047788

PATIENT
  Age: 28 Year
  Sex: Female

DRUGS (2)
  1. IMPLANON [Suspect]
     Dosage: UNK
     Route: 058
     Dates: end: 20080112
  2. MIRENA [Suspect]
     Dosage: UNK
     Dates: start: 20080111, end: 20111123

REACTIONS (3)
  - INFERTILITY [None]
  - OSTEOPOROSIS [None]
  - PREMATURE MENOPAUSE [None]
